FAERS Safety Report 11735166 (Version 1)
Quarter: 2015Q4

REPORT INFORMATION
  Report Type: Spontaneous
  Country: SE (occurrence: SE)
  Receive Date: 20151113
  Receipt Date: 20151113
  Transmission Date: 20160304
  Serious: Yes (Hospitalization)
  Sender: FDA-Public Use
  Company Number: SE-ASTRAZENECA-2015SF07717

PATIENT
  Age: 67 Year
  Sex: Male

DRUGS (2)
  1. TROMBYL [Concomitant]
     Active Substance: ASPIRIN
     Dates: end: 20150608
  2. BRILIQUE [Suspect]
     Active Substance: TICAGRELOR
     Indication: MYOCARDIAL INFARCTION
     Route: 048
     Dates: start: 20150325, end: 20150608

REACTIONS (2)
  - Colon neoplasm [Unknown]
  - Tumour haemorrhage [Recovered/Resolved]

NARRATIVE: CASE EVENT DATE: 20150518
